FAERS Safety Report 13513365 (Version 1)
Quarter: 2017Q2

REPORT INFORMATION
  Report Type: Spontaneous
  Country: IE (occurrence: IE)
  Receive Date: 20170504
  Receipt Date: 20170504
  Transmission Date: 20170830
  Serious: Yes (Hospitalization)
  Sender: FDA-Public Use
  Company Number: IE-JNJFOC-20170428859

PATIENT
  Age: 50 Year
  Sex: Male
  Weight: 95 kg

DRUGS (6)
  1. BUDESONIDE. [Concomitant]
     Active Substance: BUDESONIDE
     Route: 065
  2. CARDICOR [Concomitant]
     Active Substance: BISOPROLOL
     Route: 065
  3. LERCANIDIPINE [Concomitant]
     Active Substance: LERCANIDIPINE
     Indication: HYPERTENSION
     Route: 065
  4. CETIRIZINE [Concomitant]
     Active Substance: CETIRIZINE HYDROCHLORIDE
     Indication: PREMEDICATION
     Route: 065
     Dates: start: 20170331, end: 20170331
  5. REMICADE [Suspect]
     Active Substance: INFLIXIMAB
     Indication: COLITIS ULCERATIVE
     Dosage: DOSE: 5400 MG
     Route: 042
     Dates: start: 20151111, end: 20170331
  6. NEPRAMEL [Concomitant]
     Indication: HIATUS HERNIA
     Route: 065

REACTIONS (3)
  - Restlessness [Recovered/Resolved]
  - Infusion related reaction [Recovered/Resolved]
  - Pallor [Recovered/Resolved]

NARRATIVE: CASE EVENT DATE: 20170331
